FAERS Safety Report 9799651 (Version 2)
Quarter: 2015Q3

REPORT INFORMATION
  Report Type: Spontaneous
  Country: US (occurrence: US)
  Receive Date: 20140106
  Receipt Date: 20150806
  Transmission Date: 20151125
  Serious: No
  Sender: FDA-Public Use
  Company Number: US-GILEAD-2010-0032050

PATIENT
  Age: 76 Year
  Sex: Female
  Weight: 73.94 kg

DRUGS (13)
  1. LISINOPRIL. [Concomitant]
     Active Substance: LISINOPRIL
  2. OXYGEN. [Concomitant]
     Active Substance: OXYGEN
  3. COREG CR [Concomitant]
     Active Substance: CARVEDILOL PHOSPHATE
  4. PROCARDIA XL [Concomitant]
     Active Substance: NIFEDIPINE
  5. ORACEA [Concomitant]
     Active Substance: DOXYCYCLINE
  6. IRON [Concomitant]
     Active Substance: IRON
  7. CENTRUM [Concomitant]
     Active Substance: VITAMINS
  8. PLAVIX [Concomitant]
     Active Substance: CLOPIDOGREL BISULFATE
  9. PROCRIT [Concomitant]
     Active Substance: ERYTHROPOIETIN
  10. LIPITOR [Concomitant]
     Active Substance: ATORVASTATIN CALCIUM
  11. LETAIRIS [Suspect]
     Active Substance: AMBRISENTAN
     Indication: PULMONARY ARTERIAL HYPERTENSION
     Route: 048
     Dates: start: 20090805
  12. LASIX [Concomitant]
     Active Substance: FUROSEMIDE
  13. ALPRAZOLAM. [Concomitant]
     Active Substance: ALPRAZOLAM

REACTIONS (2)
  - Nasal congestion [Unknown]
  - Sinusitis [Unknown]
